FAERS Safety Report 9249201 (Version 1)
Quarter: 2013Q1

REPORT INFORMATION
  Report Type: Spontaneous
  Country: US (occurrence: None)
  Receive Date: 20130305
  Receipt Date: 20130305
  Transmission Date: 20140127
  Serious: Yes (Disabling)
  Sender: FDA-Public Use
  Company Number: 163-21880-12060576

PATIENT
  Age: 62 Year
  Sex: Male
  Weight: 89.36 kg

DRUGS (22)
  1. REVLIMID [Suspect]
     Indication: PLASMA CELL MYELOMA
     Route: 048
     Dates: start: 20090629
  2. AMBIEN (ZOLPIDEM TARTRATE) [Concomitant]
  3. AMITRIPTYLINE (AMITRIPTYLINE) [Concomitant]
  4. ASPIRIN (ACETYLSALICYLIC ACID) [Concomitant]
  5. ATIVAN (LORAZEPAM) [Concomitant]
  6. CELEBREX (CELECOXIB) [Concomitant]
  7. CENTRUM (CENTRUM) [Concomitant]
  8. FOLIC ACID (FOLIC ACID) [Concomitant]
  9. LIDODERM (LIDOCAINE) [Concomitant]
  10. LORATIDINE [Concomitant]
  11. OXYCODONE (OXYCODONE) [Concomitant]
  12. OXYCONTIN (OXYCODONE HYDROCHLORIDE) [Concomitant]
  13. PRILOSEC [Concomitant]
  14. VITAMIN B12 (CYANOCOBALAMIN) [Concomitant]
  15. VITAMIN B6 (PYRIDOXINE HYDROCHLORIDE) [Concomitant]
  16. XALATAN (LATANOPROST) [Concomitant]
  17. XANAX (ALPRAZOLAM) [Concomitant]
  18. CELEXA (CITALOPRAM HYDROBROMIDE) [Concomitant]
  19. ALBUTEROL (SALBUTAMOL) [Concomitant]
  20. DUONEB (COMBIVENT) [Concomitant]
  21. PREDNISOLONE (PREDNISOLONE) [Concomitant]
  22. ZOFRAN (ONDANSETRON HYDROCHLORIDE) [Concomitant]

REACTIONS (2)
  - Insomnia [None]
  - Fatigue [None]
